FAERS Safety Report 25778150 (Version 2)
Quarter: 2025Q3

REPORT INFORMATION
  Report Type: Spontaneous
  Country: US (occurrence: US)
  Receive Date: 20250909
  Receipt Date: 20250926
  Transmission Date: 20251020
  Serious: Yes (Life-Threatening, Hospitalization)
  Sender: MYLAN
  Company Number: US-MYLANLABS-2025M1076081

PATIENT
  Age: 72 Year
  Sex: Female

DRUGS (16)
  1. PREDNISONE [Suspect]
     Active Substance: PREDNISONE
     Indication: Anaphylaxis prophylaxis
  2. PREDNISONE [Suspect]
     Active Substance: PREDNISONE
     Indication: Premedication
     Route: 048
  3. PREDNISONE [Suspect]
     Active Substance: PREDNISONE
     Route: 048
  4. PREDNISONE [Suspect]
     Active Substance: PREDNISONE
  5. DIPHENHYDRAMINE [Suspect]
     Active Substance: DIPHENHYDRAMINE
     Indication: Anaphylaxis prophylaxis
  6. DIPHENHYDRAMINE [Suspect]
     Active Substance: DIPHENHYDRAMINE
     Indication: Premedication
     Route: 048
  7. DIPHENHYDRAMINE [Suspect]
     Active Substance: DIPHENHYDRAMINE
     Route: 048
  8. DIPHENHYDRAMINE [Suspect]
     Active Substance: DIPHENHYDRAMINE
  9. VISIPAQUE [Concomitant]
     Active Substance: IODIXANOL
     Indication: Scan with contrast
  10. VISIPAQUE [Concomitant]
     Active Substance: IODIXANOL
  11. VISIPAQUE [Concomitant]
     Active Substance: IODIXANOL
     Route: 065
  12. VISIPAQUE [Concomitant]
     Active Substance: IODIXANOL
     Route: 065
  13. VISIPAQUE [Concomitant]
     Active Substance: IODIXANOL
  14. VISIPAQUE [Concomitant]
     Active Substance: IODIXANOL
  15. VISIPAQUE [Concomitant]
     Active Substance: IODIXANOL
     Route: 065
  16. VISIPAQUE [Concomitant]
     Active Substance: IODIXANOL
     Route: 065

REACTIONS (1)
  - Drug ineffective [Unknown]
